FAERS Safety Report 10410462 (Version 2)
Quarter: 2014Q4

REPORT INFORMATION
  Report Type: Spontaneous
  Country: US (occurrence: US)
  Receive Date: 20140826
  Receipt Date: 20141212
  Transmission Date: 20150528
  Serious: Yes (Other)
  Sender: FDA-Public Use
  Company Number: US-GLAXOSMITHKLINE-A1086405A

PATIENT
  Age: 42 Year
  Sex: Male
  Weight: 118.37 kg

DRUGS (2)
  1. TREXIMET [Suspect]
     Active Substance: NAPROXEN SODIUM\SUMATRIPTAN SUCCINATE
     Indication: PRODUCT USED FOR UNKNOWN INDICATION
     Dosage: 85/500 MG. UNKNOWN DOSING.
     Route: 065
  2. VERAMYST [Suspect]
     Active Substance: FLUTICASONE FUROATE
     Indication: PRODUCT USED FOR UNKNOWN INDICATION
     Dosage: 27.5 MCG. UNKNOWN DOSING.
     Route: 065

REACTIONS (11)
  - Neck injury [Unknown]
  - Paraesthesia [Unknown]
  - Disability [Unknown]
  - Fall [Unknown]
  - Hypoaesthesia [Unknown]
  - Neck pain [Unknown]
  - Accident at work [Unknown]
  - Joint injury [Unknown]
  - Musculoskeletal pain [Unknown]
  - Pain [Unknown]
  - Insomnia [Unknown]

NARRATIVE: CASE EVENT DATE: 20130408
